FAERS Safety Report 24776220 (Version 2)
Quarter: 2025Q1

REPORT INFORMATION
  Report Type: Report from Study
  Country: US (occurrence: US)
  Receive Date: 20241226
  Receipt Date: 20250114
  Transmission Date: 20250409
  Serious: Yes (Other)
  Sender: ABBVIE
  Company Number: US-ABBVIE-6058833

PATIENT
  Age: 69 Year
  Sex: Female
  Weight: 54 kg

DRUGS (8)
  1. RESTASIS [Suspect]
     Active Substance: CYCLOSPORINE
     Indication: Dry eye
     Dosage: 1 DROP EACH EYE, FORM STRENGTH- 0.5MG/ML
     Route: 047
     Dates: start: 2021, end: 20241213
  2. RESTASIS [Suspect]
     Active Substance: CYCLOSPORINE
     Route: 047
     Dates: start: 2018
  3. ADVIL [Concomitant]
     Active Substance: IBUPROFEN
     Indication: Pain
  4. OMEPRAZOLE [Concomitant]
     Active Substance: OMEPRAZOLE
     Indication: Product used for unknown indication
  5. TRAZODONE [Concomitant]
     Active Substance: TRAZODONE HYDROCHLORIDE
     Indication: Sleep disorder
  6. OCUVITE [Concomitant]
     Active Substance: VITAMINS
     Indication: Vitamin supplementation
  7. Blink [Concomitant]
     Indication: Dry eye
     Route: 047
     Dates: start: 2016
  8. OASIS TEARS [Concomitant]
     Active Substance: GLYCERIN
     Indication: Dry eye
     Route: 047
     Dates: start: 2016

REACTIONS (4)
  - Trigger finger [Recovering/Resolving]
  - Hypoaesthesia [Recovering/Resolving]
  - Carpal tunnel syndrome [Recovering/Resolving]
  - Grip strength decreased [Unknown]
